FAERS Safety Report 5456137-1 (Version None)
Quarter: 2007Q3

REPORT INFORMATION
  Report Type: 
  Country: None (occurrence: None)
  Receive Date: 20070918
  Receipt Date: 20070911
  Transmission Date: 20080115
  Serious: Yes (Other)
  Sender: FDA-Public Use
  Company Number: US-ASTRAZENECA-2007UW21627

PATIENT
  Age: 66 Year
  Sex: Female

DRUGS (2)
  1. NEXIUM [Suspect]
     Route: 048
  2. SYNTHROID [Concomitant]

REACTIONS (6)
  - DRUG INEFFECTIVE [None]
  - PRURITUS [None]
  - RASH [None]
  - REGURGITATION [None]
  - STATUS EPILEPTICUS [None]
  - SWELLING [None]
